FAERS Safety Report 13544645 (Version 1)
Quarter: 2017Q2

REPORT INFORMATION
  Report Type: Report from Study
  Country: None (occurrence: US)
  Receive Date: 20170515
  Receipt Date: 20170515
  Transmission Date: 20170830
  Serious: Yes (Other)
  Sender: FDA-Public Use
  Company Number: US-ABBVIE-17K-163-1919420-00

PATIENT
  Age: 34 Year
  Sex: Male
  Weight: 88.53 kg

DRUGS (1)
  1. HUMIRA [Suspect]
     Active Substance: ADALIMUMAB
     Indication: CROHN^S DISEASE
     Route: 058
     Dates: start: 201410

REACTIONS (6)
  - Anal pruritus [Recovering/Resolving]
  - Drug ineffective [Not Recovered/Not Resolved]
  - Anorectal swelling [Recovering/Resolving]
  - Anal fistula [Recovering/Resolving]
  - Proctalgia [Recovering/Resolving]
  - Anal haemorrhage [Recovering/Resolving]

NARRATIVE: CASE EVENT DATE: 201511
